FAERS Safety Report 6986746-X (Version None)
Quarter: 2010Q3

REPORT INFORMATION
  Report Type: 
  Country: None (occurrence: None)
  Receive Date: 20100915
  Receipt Date: 20090724
  Transmission Date: 20110219
  Serious: No
  Sender: FDA-Public Use
  Company Number: US-WYE-H10334209

PATIENT
  Sex: Female
  Weight: 65.83 kg

DRUGS (1)
  1. PRISTIQ [Suspect]
     Indication: DEPRESSION
     Route: 048
     Dates: start: 20090720, end: 20090723

REACTIONS (9)
  - DIZZINESS [None]
  - DYSGEUSIA [None]
  - FATIGUE [None]
  - FEELING HOT [None]
  - HALLUCINATION, AUDITORY [None]
  - HYPERHIDROSIS [None]
  - NAUSEA [None]
  - NERVOUSNESS [None]
  - UNEVALUABLE EVENT [None]
